FAERS Safety Report 9637301 (Version 1)
Quarter: 2013Q4

REPORT INFORMATION
  Report Type: Report from Study
  Country: HU (occurrence: HU)
  Receive Date: 20131022
  Receipt Date: 20131022
  Transmission Date: 20140711
  Serious: Yes (Death)
  Sender: FDA-Public Use
  Company Number: HU-SA-2013SA104585

PATIENT
  Age: 66 Year
  Sex: Male
  Weight: 97.1 kg

DRUGS (2)
  1. INSULIN GLARGINE [Suspect]
     Indication: DIABETES MELLITUS
     Route: 058
  2. MEFORAL [Concomitant]

REACTIONS (1)
  - Death [Fatal]
